FAERS Safety Report 23467843 (Version 3)
Quarter: 2024Q2

REPORT INFORMATION
  Report Type: Spontaneous
  Country: US (occurrence: US)
  Receive Date: 20240201
  Receipt Date: 20240404
  Transmission Date: 20240716
  Serious: Yes (Other)
  Sender: FDA-Public Use
  Company Number: US-MYLANLABS-2024M1007670

PATIENT
  Sex: Female
  Weight: 47.4 kg

DRUGS (1)
  1. PHENYTOIN [Suspect]
     Active Substance: PHENYTOIN
     Indication: Seizure
     Dosage: 50 MILLIGRAM
     Route: 065

REACTIONS (10)
  - Suicidal ideation [Unknown]
  - Cerebral palsy [Unknown]
  - Thrombosis [Unknown]
  - Cerebrovascular accident [Unknown]
  - Seizure [Unknown]
  - Abnormal dreams [Unknown]
  - Nightmare [Unknown]
  - Gait disturbance [Unknown]
  - Drug hypersensitivity [Unknown]
  - Tremor [Unknown]
